FAERS Safety Report 8836168 (Version 2)
Quarter: 2012Q4

REPORT INFORMATION
  Report Type: 
  Country: US (occurrence: US)
  Receive Date: 20121011
  Receipt Date: 20121023
  Transmission Date: 20130627
  Serious: Yes (Other)
  Sender: FDA-Public Use
  Company Number: US-PFIZER INC-2012250479

PATIENT
  Age: 68 Year
  Sex: Male

DRUGS (4)
  1. ZOLOFT [Suspect]
     Dosage: UNK
  2. NEURONTIN [Suspect]
     Dosage: UNK
  3. CELEBREX [Suspect]
     Dosage: UNK
  4. GLUCOTROL [Suspect]
     Dosage: UNK

REACTIONS (1)
  - Diabetes mellitus [Unknown]
